FAERS Safety Report 16994790 (Version 3)
Quarter: 2019Q4

REPORT INFORMATION
  Report Type: Spontaneous
  Country: DE (occurrence: DE)
  Receive Date: 20191105
  Receipt Date: 20191221
  Transmission Date: 20200122
  Serious: Yes (Other)
  Sender: FDA-Public Use
  Company Number: DE-MYLANLABS-2019M1104208

PATIENT
  Sex: Female

DRUGS (4)
  1. VALSARTAN MYLAN [Suspect]
     Active Substance: VALSARTAN
     Indication: PRODUCT USED FOR UNKNOWN INDICATION
     Dosage: 160 MILLIGRAM, ONCE DAILY IN THE MORNINGS
     Dates: start: 2012, end: 2018
  2. METOPROLOL SUCCINATE. [Concomitant]
     Active Substance: METOPROLOL SUCCINATE
     Dosage: UNK
  3. EUTHYROX [Concomitant]
     Active Substance: LEVOTHYROXINE SODIUM
     Dosage: UNK
  4. MOXOBETA [Concomitant]
     Active Substance: MOXONIDINE
     Dosage: UNK

REACTIONS (4)
  - Exposure to toxic agent [Unknown]
  - Mental impairment [Not Recovered/Not Resolved]
  - Disease susceptibility [Unknown]
  - Impaired quality of life [Not Recovered/Not Resolved]
